FAERS Safety Report 14910184 (Version 1)
Quarter: 2018Q2

REPORT INFORMATION
  Report Type: Spontaneous
  Country: US (occurrence: US)
  Receive Date: 20180430
  Receipt Date: 20180430
  Transmission Date: 20180711
  Serious: Yes (Hospitalization)
  Sender: FDA-Public Use
  Company Number: None

PATIENT
  Age: 40 Year
  Sex: Female
  Weight: 63 kg

DRUGS (8)
  1. RIZATRIPTAN 10MG [Concomitant]
     Active Substance: RIZATRIPTAN
     Dates: start: 20180418
  2. TIZANIDINE 4MG [Concomitant]
     Active Substance: TIZANIDINE
     Dates: start: 20180418
  3. IBUPROFEN 600MG [Concomitant]
     Active Substance: IBUPROFEN
     Dates: start: 20180325
  4. PROMETHAZINE [Concomitant]
     Active Substance: PROMETHAZINE\PROMETHAZINE HYDROCHLORIDE
     Dates: start: 20180325
  5. LAMOTRIGINE. [Suspect]
     Active Substance: LAMOTRIGINE
     Indication: AFFECTIVE DISORDER
     Route: 048
     Dates: start: 20180329, end: 20180418
  6. CLONAZEPAM. [Concomitant]
     Active Substance: CLONAZEPAM
     Dates: start: 20171130
  7. OXYCODONE/APAP 5/325 [Concomitant]
     Dates: start: 20180409
  8. VERAPAMIL ER 120MG [Concomitant]
     Dates: start: 20180308, end: 20180408

REACTIONS (7)
  - Blood pressure increased [None]
  - Rash [None]
  - Vomiting [None]
  - Nausea [None]
  - Insomnia [None]
  - Anxiety [None]
  - Headache [None]

NARRATIVE: CASE EVENT DATE: 20180426
